APPROVED DRUG PRODUCT: OLMESARTAN MEDOXOMIL
Active Ingredient: OLMESARTAN MEDOXOMIL
Strength: 40MG
Dosage Form/Route: TABLET;ORAL
Application: A208659 | Product #003 | TE Code: AB
Applicant: INVENTIA HEALTHCARE LTD
Approved: May 18, 2020 | RLD: No | RS: No | Type: RX